FAERS Safety Report 16466255 (Version 1)
Quarter: 2019Q2

REPORT INFORMATION
  Report Type: Spontaneous
  Country: US (occurrence: US)
  Receive Date: 20190621
  Receipt Date: 20190621
  Transmission Date: 20190711
  Serious: Yes (Other)
  Sender: FDA-Public Use
  Company Number: US-ROCHE-2341487

PATIENT
  Sex: Female

DRUGS (8)
  1. AMOXICILLIN. [Concomitant]
     Active Substance: AMOXICILLIN
     Route: 065
  2. ADVAIR HFA [Concomitant]
     Active Substance: FLUTICASONE PROPIONATE\SALMETEROL XINAFOATE
     Dosage: AER 250/50
     Route: 065
  3. VAGIFEM [Concomitant]
     Active Substance: ESTRADIOL
     Route: 065
  4. TIAGABINE HYDROCHLORIDE. [Concomitant]
     Active Substance: TIAGABINE HYDROCHLORIDE
  5. ITRACONAZOLE. [Concomitant]
     Active Substance: ITRACONAZOLE
  6. ESCITALOPRAM [Concomitant]
     Active Substance: ESCITALOPRAM OXALATE
     Route: 065
  7. BUPROPION HYDROCHLORIDE XL [Concomitant]
     Active Substance: BUPROPION HYDROCHLORIDE
     Route: 065
  8. XOLAIR [Suspect]
     Active Substance: OMALIZUMAB
     Indication: ASTHMA
     Route: 058
     Dates: start: 201504

REACTIONS (1)
  - Pneumonia [Recovered/Resolved]
